FAERS Safety Report 4636790-2 (Version None)
Quarter: 2005Q2

REPORT INFORMATION
  Report Type: 
  Country: None (occurrence: None)
  Receive Date: 20050415
  Receipt Date: 20050407
  Transmission Date: 20051028
  Serious: Yes (Other)
  Sender: FDA-Public Use
  Company Number: GB-ABBOTT-05P-167-0296865-00

PATIENT
  Sex: Male

DRUGS (1)
  1. EPILIM [Suspect]
     Indication: BIPOLAR DISORDER
     Route: 065

REACTIONS (3)
  - BACK PAIN [None]
  - BLOOD AMYLASE ABNORMAL [None]
  - PANCREATIC CYST [None]
